FAERS Safety Report 9880694 (Version 2)
Quarter: 2014Q4

REPORT INFORMATION
  Report Type: Spontaneous
  Country: SE (occurrence: SE)
  Receive Date: 20140207
  Receipt Date: 20141016
  Transmission Date: 20150529
  Serious: Yes (Life-Threatening, Hospitalization)
  Sender: FDA-Public Use
  Company Number: PHHY2014SE011373

PATIENT
  Age: 2 Year
  Sex: Female

DRUGS (3)
  1. EXJADE [Suspect]
     Active Substance: DEFERASIROX
     Dosage: 750 MG, PER DAY
     Route: 048
     Dates: start: 2011
  2. EXJADE [Suspect]
     Active Substance: DEFERASIROX
     Dosage: 1000 MG PER DAY
     Route: 048
     Dates: start: 20130306, end: 20130524
  3. EXJADE [Suspect]
     Active Substance: DEFERASIROX
     Indication: THALASSAEMIA BETA
     Route: 065
     Dates: start: 2006

REACTIONS (12)
  - Dehydration [Recovered/Resolved with Sequelae]
  - Renal impairment [Recovered/Resolved with Sequelae]
  - Rash [Recovered/Resolved with Sequelae]
  - Faeces discoloured [Recovered/Resolved with Sequelae]
  - Blood electrolytes abnormal [Not Recovered/Not Resolved]
  - Vomiting [Recovered/Resolved with Sequelae]
  - Fanconi syndrome acquired [Not Recovered/Not Resolved]
  - Diarrhoea [Not Recovered/Not Resolved]
  - Decreased appetite [Recovered/Resolved with Sequelae]
  - Weight decreased [Recovered/Resolved with Sequelae]
  - Chromaturia [Recovered/Resolved with Sequelae]
  - Abdominal pain [Recovered/Resolved with Sequelae]

NARRATIVE: CASE EVENT DATE: 2006
